FAERS Safety Report 14314836 (Version 1)
Quarter: 2017Q4

REPORT INFORMATION
  Report Type: Spontaneous
  Country: JP (occurrence: JP)
  Receive Date: 20171221
  Receipt Date: 20171221
  Transmission Date: 20180321
  Serious: Yes (Hospitalization, Other)
  Sender: FDA-Public Use
  Company Number: JP-TAKEDA-2017TUS026507

PATIENT
  Age: 68 Year
  Sex: Male
  Weight: 56.5 kg

DRUGS (3)
  1. AMLODIN [Concomitant]
     Active Substance: AMLODIPINE BESYLATE
     Indication: HYPERTENSION
     Dosage: UNK
     Route: 048
  2. BASEN                              /01290601/ [Concomitant]
     Active Substance: VOGLIBOSE
     Indication: DIABETES MELLITUS
     Dosage: UNK
     Route: 048
  3. FEBURIC [Suspect]
     Active Substance: FEBUXOSTAT
     Indication: HYPERURICAEMIA
     Dosage: 20 MG, QD
     Route: 048
     Dates: start: 20140612

REACTIONS (1)
  - Oropharyngeal cancer [Recovered/Resolved]

NARRATIVE: CASE EVENT DATE: 20140730
